FAERS Safety Report 11423352 (Version 1)
Quarter: 2015Q3

REPORT INFORMATION
  Report Type: Spontaneous
  Country: US (occurrence: None)
  Receive Date: 20150826
  Receipt Date: 20150826
  Transmission Date: 20151125
  Serious: No
  Sender: FDA-Public Use
  Company Number: None

PATIENT
  Age: 65 Year
  Sex: Female
  Weight: 68.04 kg

DRUGS (1)
  1. LISINOPRIL 10 MG [Suspect]
     Active Substance: LISINOPRIL
     Indication: HYPERTENSION
     Route: 048
     Dates: start: 20150811, end: 20150812

REACTIONS (7)
  - Presyncope [None]
  - Cough [None]
  - Stress [None]
  - Insomnia [None]
  - Anxiety [None]
  - Asthenia [None]
  - Fear [None]

NARRATIVE: CASE EVENT DATE: 20150811
